FAERS Safety Report 5092653-2 (Version None)
Quarter: 2006Q3

REPORT INFORMATION
  Report Type: 
  Country: None (occurrence: None)
  Receive Date: 20060824
  Receipt Date: 20060816
  Transmission Date: 20061208
  Serious: Yes (Hospitalization)
  Sender: FDA-Public Use
  Company Number: 2006-DE-03789GD

PATIENT
  Age: 72 Year
  Sex: Female

DRUGS (3)
  1. TRIMETHOPRIM + SULFAMETHOXAZOLE [Suspect]
     Indication: INTERSTITIAL LUNG DISEASE
  2. TRIMETHOPRIM + SULFAMETHOXAZOLE [Suspect]
     Indication: PNEUMOCYSTIS JIROVECI PNEUMONIA
  3. METHOTREXATE [Suspect]
     Indication: TEMPORAL ARTERITIS

REACTIONS (9)
  - CONFUSIONAL STATE [None]
  - CSF PROTEIN INCREASED [None]
  - CYTOLYTIC HEPATITIS [None]
  - DRUG HYPERSENSITIVITY [None]
  - ENCEPHALITIS [None]
  - HUMAN HERPESVIRUS 6 INFECTION [None]
  - LYMPHADENOPATHY [None]
  - PANCYTOPENIA [None]
  - RENAL FAILURE [None]
